FAERS Safety Report 13639828 (Version 1)
Quarter: 2017Q2

REPORT INFORMATION
  Report Type: Spontaneous
  Country: US (occurrence: US)
  Receive Date: 20170609
  Receipt Date: 20170609
  Transmission Date: 20170830
  Serious: No
  Sender: FDA-Public Use
  Company Number: US-ROCHE-679030

PATIENT
  Age: 10 Year
  Sex: Female
  Weight: 45.4 kg

DRUGS (1)
  1. KLONOPIN [Suspect]
     Active Substance: CLONAZEPAM
     Indication: PRODUCT USED FOR UNKNOWN INDICATION
     Route: 065

REACTIONS (5)
  - Vertigo [Unknown]
  - Dyspnoea [Unknown]
  - Dizziness [Unknown]
  - Palpitations [Unknown]
  - Hyperventilation [Unknown]

NARRATIVE: CASE EVENT DATE: 2008
